FAERS Safety Report 13373509 (Version 1)
Quarter: 2017Q1

REPORT INFORMATION
  Report Type: Spontaneous
  Country: US (occurrence: US)
  Receive Date: 20170327
  Receipt Date: 20170327
  Transmission Date: 20170429
  Serious: Yes (Other)
  Sender: FDA-Public Use
  Company Number: US-LPDUSPRD-20170322

PATIENT
  Age: 48 Year
  Sex: Male
  Weight: 72 kg

DRUGS (6)
  1. NO DRUG NAME [Concomitant]
  2. PROPOFOL. [Suspect]
     Active Substance: PROPOFOL
     Dosage: 150 MG
     Route: 065
  3. MIDAZOLAM [Suspect]
     Active Substance: MIDAZOLAM HYDROCHLORIDE
     Dosage: 2 MG
     Route: 065
  4. PHENYLEPHRINE HCL [Suspect]
     Active Substance: PHENYLEPHRINE HYDROCHLORIDE
     Dosage: 8.64 MG
     Route: 042
  5. NO DRUG NAME [Suspect]
     Active Substance: UNSPECIFIED INGREDIENT
     Dosage: 80 MCG
  6. ROCURONIUM [Concomitant]
     Active Substance: ROCURONIUM BROMIDE
     Dosage: 70 MG

REACTIONS (2)
  - Diabetes insipidus [Unknown]
  - Procedural complication [None]
